FAERS Safety Report 7896313-1 (Version None)
Quarter: 2011Q4

REPORT INFORMATION
  Report Type: 
  Country: None (occurrence: None)
  Receive Date: 20111106
  Receipt Date: 20110908
  Transmission Date: 20120403
  Serious: No
  Sender: FDA-Public Use
  Company Number: US-AMGEN-USASP2011040279

PATIENT
  Age: 71 Year
  Sex: Female

DRUGS (2)
  1. ENBREL [Suspect]
     Indication: RHEUMATOID ARTHRITIS
     Dosage: 50 MG, QWK
     Dates: start: 19980101
  2. ENBREL [Suspect]
     Indication: PSORIASIS

REACTIONS (9)
  - STRESS [None]
  - DERMATITIS CONTACT [None]
  - THROAT TIGHTNESS [None]
  - FEELING HOT [None]
  - FATIGUE [None]
  - CONVULSION [None]
  - HEADACHE [None]
  - VISUAL IMPAIRMENT [None]
  - MIGRAINE [None]
